FAERS Safety Report 13472616 (Version 1)
Quarter: 2017Q2

REPORT INFORMATION
  Report Type: Report from Study
  Country: US (occurrence: US)
  Receive Date: 20170424
  Receipt Date: 20170424
  Transmission Date: 20170830
  Serious: Yes (Other)
  Sender: FDA-Public Use
  Company Number: US-MALLINCKRODT-T201701006

PATIENT
  Sex: Male

DRUGS (1)
  1. REPOSITORY CORTICOTROPIN INJECTION [Suspect]
     Active Substance: CORTICOTROPIN
     Indication: SARCOIDOSIS
     Dosage: 40 UNITS / 0.5 ML, 2 TIMES PER WEEK
     Route: 058
     Dates: start: 20161209

REACTIONS (3)
  - Umbilical hernia [Not Recovered/Not Resolved]
  - Pain in extremity [Unknown]
  - Hyperglycaemia [Not Recovered/Not Resolved]
